FAERS Safety Report 4705386-6 (Version None)
Quarter: 2005Q3

REPORT INFORMATION
  Report Type: 
  Country: None (occurrence: None)
  Receive Date: 20050701
  Receipt Date: 20050622
  Transmission Date: 20060218
  Serious: Yes (Other)
  Sender: FDA-Public Use
  Company Number: US-GLAXOSMITHKLINE-A0563813A

PATIENT
  Sex: Male

DRUGS (1)
  1. COREG [Suspect]
     Indication: CARDIAC FAILURE CONGESTIVE
     Route: 048

REACTIONS (1)
  - RENAL FAILURE [None]
